FAERS Safety Report 8401192-X (Version None)
Quarter: 2012Q2

REPORT INFORMATION
  Report Type: 
  Country: None (occurrence: None)
  Receive Date: 20120530
  Receipt Date: 20120530
  Transmission Date: 20120825
  Serious: No
  Sender: FDA-Public Use
  Company Number: None

PATIENT
  Age: 59 Year
  Sex: Female
  Weight: 76.2043 kg

DRUGS (1)
  1. ESCITALOPRAM [Suspect]
     Indication: ANXIETY
     Dosage: 10 MGS BID PO
     Route: 048
     Dates: start: 20120514, end: 20120521

REACTIONS (5)
  - PRODUCT SUBSTITUTION ISSUE [None]
  - ASTHENIA [None]
  - DEPRESSION [None]
  - TREMOR [None]
  - ANXIETY [None]
